FAERS Safety Report 22712057 (Version 2)
Quarter: 2025Q2

REPORT INFORMATION
  Report Type: Spontaneous
  Country: US (occurrence: US)
  Receive Date: 20230717
  Receipt Date: 20250626
  Transmission Date: 20250716
  Serious: No
  Sender: SANOFI AVENTIS
  Company Number: US-SA-SAC20230717000177

PATIENT
  Age: 27 Year
  Sex: Female

DRUGS (7)
  1. DUPIXENT [Suspect]
     Active Substance: DUPILUMAB
     Indication: Eosinophilic oesophagitis
     Dosage: 300 MG, QW
     Route: 058
     Dates: start: 20230622
  2. ESCITALOPRAM [Concomitant]
     Active Substance: ESCITALOPRAM OXALATE
  3. MELOXICAM [Concomitant]
     Active Substance: MELOXICAM
  4. NAPROXEN [Concomitant]
     Active Substance: NAPROXEN
  5. ESCITALOPRAM [Concomitant]
     Active Substance: ESCITALOPRAM OXALATE
  6. IBUPROFEN [Concomitant]
     Active Substance: IBUPROFEN
  7. FLUCONAZOLE [Concomitant]
     Active Substance: FLUCONAZOLE

REACTIONS (2)
  - Eosinophilic oesophagitis [Recovered/Resolved]
  - Drug ineffective [Unknown]

NARRATIVE: CASE EVENT DATE: 20230101
